FAERS Safety Report 23418467 (Version 1)
Quarter: 2024Q1

REPORT INFORMATION
  Report Type: Other
  Country: US (occurrence: US)
  Receive Date: 20240118
  Receipt Date: 20240118
  Transmission Date: 20240410
  Serious: No
  Sender: FDA-Public Use
  Company Number: US-UROVANT SCIENCES GMBH-202309-URV-001864

PATIENT
  Sex: Female

DRUGS (2)
  1. GEMTESA [Suspect]
     Active Substance: VIBEGRON
     Indication: Urinary incontinence
     Dosage: UNK
     Route: 065
     Dates: start: 20230912
  2. GEMTESA [Suspect]
     Active Substance: VIBEGRON
     Dosage: UNK
     Route: 065

REACTIONS (2)
  - Pruritus [Recovering/Resolving]
  - Ocular hyperaemia [Not Recovered/Not Resolved]
